FAERS Safety Report 5559860-3 (Version None)
Quarter: 2007Q4

REPORT INFORMATION
  Report Type: 
  Country: None (occurrence: None)
  Receive Date: 20071214
  Receipt Date: 20071010
  Transmission Date: 20080405
  Serious: No
  Sender: FDA-Public Use
  Company Number: US-ABBOTT-07P-163-0421173-00

PATIENT
  Sex: Female
  Weight: 96.702 kg

DRUGS (3)
  1. HUMIRA [Suspect]
     Indication: RHEUMATOID ARTHRITIS
     Route: 058
     Dates: start: 20071004
  2. METHOTREXATE [Suspect]
     Indication: DRUG USE FOR UNKNOWN INDICATION
     Route: 048
     Dates: start: 20071007
  3. METHOTREXATE [Suspect]
     Route: 048
     Dates: start: 20060101

REACTIONS (2)
  - ACCIDENTAL EXPOSURE [None]
  - FATIGUE [None]
